FAERS Safety Report 9719782 (Version 1)
Quarter: 2013Q4

REPORT INFORMATION
  Report Type: Spontaneous
  Country: US (occurrence: US)
  Receive Date: 20131128
  Receipt Date: 20131128
  Transmission Date: 20140711
  Serious: Yes (Other)
  Sender: FDA-Public Use
  Company Number: US-SUN PHARMACEUTICAL INDUSTRIES LTD-2013SUN05072

PATIENT
  Sex: 0

DRUGS (8)
  1. HYDROCODONE BITARTRATE + ACETAMINOPHEN C-III TABS 7.5MG/325MG [Suspect]
     Indication: BACK PAIN
     Dosage: ONE EVERY 6 HOURS THREE TIMES PER DAY
     Route: 065
     Dates: start: 20131112, end: 20131118
  2. TRAMADOL [Concomitant]
  3. CLONIDINE [Concomitant]
  4. TRAZODONE [Concomitant]
  5. ZYRTEC [Concomitant]
  6. VENTOLIN INHALER [Concomitant]
  7. BACLOFEN [Concomitant]
  8. SOMA [Concomitant]

REACTIONS (7)
  - Hallucination [Unknown]
  - Syncope [Unknown]
  - Tremor [Unknown]
  - Loss of consciousness [Unknown]
  - Asthenia [Unknown]
  - Sciatica [Unknown]
  - Narcolepsy [Unknown]
